FAERS Safety Report 10930241 (Version 2)
Quarter: 2015Q2

REPORT INFORMATION
  Report Type: Spontaneous
  Country: US (occurrence: US)
  Receive Date: 20150319
  Receipt Date: 20150501
  Transmission Date: 20150821
  Serious: No
  Sender: FDA-Public Use
  Company Number: US-PFIZER INC-2015093584

PATIENT
  Age: 59 Year
  Sex: Male

DRUGS (1)
  1. NEURONTIN [Suspect]
     Active Substance: GABAPENTIN
     Indication: NEUROPATHY PERIPHERAL
     Dosage: 3600 MG, DAILY
     Dates: start: 2002

REACTIONS (4)
  - Product use issue [Unknown]
  - Nervousness [Recovered/Resolved]
  - Fear [Recovered/Resolved]
  - Exaggerated startle response [Recovered/Resolved]
